FAERS Safety Report 20704288 (Version 9)
Quarter: 2024Q1

REPORT INFORMATION
  Report Type: Spontaneous
  Country: CA (occurrence: None)
  Receive Date: 20220413
  Receipt Date: 20240212
  Transmission Date: 20240409
  Serious: Yes (Hospitalization)
  Sender: FDA-Public Use
  Company Number: CA-ROCHE-3071028

PATIENT
  Age: 18 Year
  Sex: Female

DRUGS (5)
  1. RITUXIMAB [Suspect]
     Active Substance: RITUXIMAB
     Indication: Myasthenia gravis
     Route: 042
  2. CETIRIZINE [Concomitant]
     Active Substance: CETIRIZINE HYDROCHLORIDE
     Route: 048
  3. HUMAN IMMUNOGLOBULIN G [Concomitant]
     Active Substance: HUMAN IMMUNOGLOBULIN G
  4. SOLU-MEDROL [Concomitant]
     Active Substance: METHYLPREDNISOLONE SODIUM SUCCINATE
     Indication: Premedication
     Route: 042
  5. DICLECTIN [Concomitant]
     Active Substance: DOXYLAMINE SUCCINATE\PYRIDOXINE HYDROCHLORIDE

REACTIONS (7)
  - Atrial fibrillation [Unknown]
  - Contrast media allergy [Unknown]
  - Blood pressure diastolic abnormal [Unknown]
  - Blood pressure diastolic decreased [Unknown]
  - Gastrointestinal disorder [Unknown]
  - Weight decreased [Unknown]
  - Off label use [Unknown]
